FAERS Safety Report 21598791 (Version 1)
Quarter: 2022Q4

REPORT INFORMATION
  Report Type: Spontaneous
  Country: US (occurrence: US)
  Receive Date: 20221115
  Receipt Date: 20221115
  Transmission Date: 20230113
  Serious: No
  Sender: FDA-Public Use
  Company Number: US-SANOFI-01343449

PATIENT
  Sex: Male

DRUGS (2)
  1. AMBIEN [Suspect]
     Active Substance: ZOLPIDEM TARTRATE
     Indication: Insomnia
     Dosage: 10 MG
  2. AMBIEN [Suspect]
     Active Substance: ZOLPIDEM TARTRATE
     Dosage: 5MG QHS

REACTIONS (5)
  - Abnormal dreams [Unknown]
  - Wound haemorrhage [Unknown]
  - Oedema [Unknown]
  - Wound [Unknown]
  - Therapeutic product effect decreased [Unknown]
